FAERS Safety Report 6562134-5 (Version None)
Quarter: 2010Q1

REPORT INFORMATION
  Report Type: 
  Country: None (occurrence: None)
  Receive Date: 20100130
  Receipt Date: 20091109
  Transmission Date: 20100710
  Serious: No
  Sender: FDA-Public Use
  Company Number: US-ABBOTT-09P-163-0605158-00

PATIENT
  Sex: Female
  Weight: 81.72 kg

DRUGS (9)
  1. HUMIRA [Suspect]
     Indication: COLITIS ULCERATIVE
     Dosage: LOADING DOSE
     Dates: start: 20090901, end: 20090901
  2. HUMIRA [Suspect]
     Route: 058
     Dates: start: 20091001, end: 20091001
  3. HUMIRA [Suspect]
     Route: 058
     Dates: start: 20091001
  4. HUMIRA [Suspect]
  5. COLAZAL [Concomitant]
     Indication: DRUG USE FOR UNKNOWN INDICATION
  6. COUMADIN [Concomitant]
     Indication: DRUG USE FOR UNKNOWN INDICATION
  7. CRESTOR [Concomitant]
     Indication: DRUG USE FOR UNKNOWN INDICATION
  8. NORCO [Concomitant]
     Indication: DRUG USE FOR UNKNOWN INDICATION
  9. AMBIEN [Concomitant]
     Indication: DRUG USE FOR UNKNOWN INDICATION

REACTIONS (2)
  - DRUG EFFECT DECREASED [None]
  - LETHARGY [None]
